FAERS Safety Report 4448519-1 (Version None)
Quarter: 2004Q3

REPORT INFORMATION
  Report Type: 
  Country: None (occurrence: None)
  Receive Date: 20040729
  Receipt Date: 20031201
  Transmission Date: 20050211
  Serious: Yes (Death)
  Sender: FDA-Public Use
  Company Number: USA-2003-0011790

PATIENT
  Age: 43 Year
  Sex: Male
  Weight: 79.4 kg

DRUGS (4)
  1. MORPHINE SULFATE [Suspect]
  2. CARISOPRODOL [Suspect]
  3. METHADONE HCL [Suspect]
  4. ORPHENADRINE CITRATE [Suspect]

REACTIONS (2)
  - ACCIDENTAL OVERDOSE [None]
  - MULTIPLE DRUG OVERDOSE [None]
